FAERS Safety Report 18695823 (Version 1)
Quarter: 2021Q1

REPORT INFORMATION
  Report Type: Spontaneous
  Country: US (occurrence: US)
  Receive Date: 20210104
  Receipt Date: 20210104
  Transmission Date: 20210419
  Serious: No
  Sender: FDA-Public Use
  Company Number: US-LUPIN PHARMACEUTICALS INC.-2019-08312

PATIENT
  Age: 9 Month
  Sex: Male
  Weight: 8.62 kg

DRUGS (1)
  1. CEFDINIR FOR ORAL SUSPENSION [Suspect]
     Active Substance: CEFDINIR
     Indication: EAR INFECTION
     Dosage: UNK
     Route: 048
     Dates: start: 20191203

REACTIONS (2)
  - Product storage error [Unknown]
  - No adverse event [Unknown]

NARRATIVE: CASE EVENT DATE: 20191203
